FAERS Safety Report 4515337-5 (Version None)
Quarter: 2004Q4

REPORT INFORMATION
  Report Type: 
  Country: None (occurrence: None)
  Receive Date: 20041029
  Receipt Date: 20040921
  Transmission Date: 20050328
  Serious: No
  Sender: FDA-Public Use
  Company Number: 200416624US

PATIENT
  Sex: Female
  Weight: 63.6 kg

DRUGS (2)
  1. KETEK [Suspect]
     Indication: BACTERIURIA
     Dosage: 800 MG QD
     Dates: start: 20040820, end: 20040822
  2. KETEK [Suspect]
     Indication: CATHETER RELATED INFECTION
     Dosage: 800 MG QD
     Dates: start: 20040820, end: 20040822

REACTIONS (2)
  - AGITATION [None]
  - NIGHTMARE [None]
